FAERS Safety Report 5506539-X (Version None)
Quarter: 2007Q4

REPORT INFORMATION
  Report Type: 
  Country: None (occurrence: None)
  Receive Date: 20071105
  Receipt Date: 20071030
  Transmission Date: 20080405
  Serious: No
  Sender: FDA-Public Use
  Company Number: B0492598A

PATIENT
  Age: 62 Year
  Sex: Male

DRUGS (7)
  1. FLUTIDE DISKUS [Suspect]
     Indication: ASTHMA
     Route: 055
     Dates: start: 20070618
  2. THEO-DUR [Concomitant]
     Route: 048
  3. KIPRES [Concomitant]
     Route: 048
  4. HOKUNALIN [Concomitant]
     Route: 062
  5. CLARITHROMYCIN [Concomitant]
     Route: 048
  6. MUCODYNE [Concomitant]
     Route: 048
  7. CELESTAMINE TAB [Concomitant]
     Route: 048

REACTIONS (2)
  - BACK PAIN [None]
  - PAIN IN EXTREMITY [None]
